FAERS Safety Report 8986104 (Version 1)
Quarter: 2012Q4

REPORT INFORMATION
  Report Type: Spontaneous
  Country: DK (occurrence: None)
  Receive Date: 20121217
  Receipt Date: 20121217
  Transmission Date: 20130627
  Serious: Yes (Other)
  Sender: FDA-Public Use
  Company Number: 2012MA014042

PATIENT
  Age: 61 Year
  Sex: Female

DRUGS (3)
  1. NAPROXEN [Suspect]
     Indication: CRAMP
     Route: 048
     Dates: start: 20121106, end: 20121115
  2. RANITIDINE [Suspect]
     Indication: PROPHYLAXIS
     Route: 048
     Dates: start: 20121106, end: 20121115
  3. LEVETIRACETAM [Concomitant]

REACTIONS (2)
  - Grand mal convulsion [None]
  - Epilepsy [None]
